FAERS Safety Report 11374643 (Version 1)
Quarter: 2015Q3

REPORT INFORMATION
  Report Type: Spontaneous
  Country: GB (occurrence: GB)
  Receive Date: 20150813
  Receipt Date: 20150813
  Transmission Date: 20151125
  Serious: Yes (Disabling)
  Sender: FDA-Public Use
  Company Number: GB-SUN PHARMACEUTICAL INDUSTRIES LTD-2015RR-101379

PATIENT

DRUGS (1)
  1. CODEINE [Suspect]
     Active Substance: CODEINE
     Indication: ANALGESIC THERAPY
     Dosage: ONCE OR TWICE DAILY. TAKEN AS REQUIRED.
     Route: 065

REACTIONS (1)
  - Somnolence [Unknown]
